FAERS Safety Report 10881820 (Version 1)
Quarter: 2015Q1

REPORT INFORMATION
  Report Type: Spontaneous
  Country: US (occurrence: None)
  Receive Date: 20150227
  Receipt Date: 20150227
  Transmission Date: 20150721
  Serious: Yes (Death, Life-Threatening, Hospitalization, Disabling)
  Sender: FDA-Public Use
  Company Number: None

PATIENT
  Age: 55 Year
  Sex: Male
  Weight: 104.33 kg

DRUGS (1)
  1. AVASTIN [Suspect]
     Active Substance: BEVACIZUMAB
     Indication: COLON CANCER
     Dosage: INTO A VEIN
     Route: 042
     Dates: start: 201305, end: 201307

REACTIONS (3)
  - Gastrointestinal perforation [None]
  - Weight decreased [None]
  - Osteonecrosis of jaw [None]

NARRATIVE: CASE EVENT DATE: 20140606
